FAERS Safety Report 20415843 (Version 1)
Quarter: 2022Q1

REPORT INFORMATION
  Report Type: Spontaneous
  Country: US (occurrence: US)
  Receive Date: 20220202
  Receipt Date: 20220202
  Transmission Date: 20220424
  Serious: No
  Sender: FDA-Public Use
  Company Number: US-Accord-221643

PATIENT
  Sex: Male

DRUGS (1)
  1. ARIPIPRAZOLE [Suspect]
     Active Substance: ARIPIPRAZOLE
     Indication: Anxiety
     Dosage: ONCE AT BEDTIME, A WEEK AGO

REACTIONS (1)
  - Taste disorder [Not Recovered/Not Resolved]
